FAERS Safety Report 16957606 (Version 1)
Quarter: 2019Q4

REPORT INFORMATION
  Report Type: Spontaneous
  Country: CA (occurrence: CA)
  Receive Date: 20191024
  Receipt Date: 20191024
  Transmission Date: 20200122
  Serious: Yes (Death, Hospitalization)
  Sender: FDA-Public Use
  Company Number: CA-TEVA-2019-CA-1125473

PATIENT
  Age: 70 Year
  Sex: Male

DRUGS (4)
  1. PREDNISONE. [Suspect]
     Active Substance: PREDNISONE
     Indication: RHEUMATOID ARTHRITIS
     Dosage: 10 MILLIGRAM DAILY; TAPERED ONE MONTH PRIOR TO PRESENTATION
     Route: 065
  2. HYDROXYCHLOROQUINE [Suspect]
     Active Substance: HYDROXYCHLOROQUINE
     Indication: RHEUMATOID ARTHRITIS
     Dosage: 200 MILLIGRAM DAILY;
     Route: 065
  3. ZOSTAVAX [Suspect]
     Active Substance: VARICELLA-ZOSTER VIRUS STRAIN OKA/MERCK LIVE ANTIGEN
     Indication: ANTIVIRAL PROPHYLAXIS
     Route: 065
  4. METHOTREXATE. [Suspect]
     Active Substance: METHOTREXATE
     Indication: RHEUMATOID ARTHRITIS
     Dosage: 2.5 MILLIGRAM DAILY; ADMINISTERED 6 DAYS A WEEK; ONGOING FOR 3 YEARS
     Route: 065

REACTIONS (7)
  - Disseminated varicella zoster vaccine virus infection [Fatal]
  - Leukopenia [Unknown]
  - Gastrointestinal disorder [Fatal]
  - Thrombocytopenia [Unknown]
  - Multiple organ dysfunction syndrome [Fatal]
  - Lung disorder [Fatal]
  - Congestive cardiomyopathy [Fatal]
